FAERS Safety Report 10101825 (Version 2)
Quarter: 2014Q2

REPORT INFORMATION
  Report Type: Spontaneous
  Country: US (occurrence: US)
  Receive Date: 20140424
  Receipt Date: 20140424
  Transmission Date: 20141212
  Serious: Yes (Other)
  Sender: FDA-Public Use
  Company Number: PHEH2014US006662

PATIENT
  Age: 53 Year
  Sex: Male

DRUGS (3)
  1. TASIGNA [Suspect]
     Indication: CHRONIC MYELOID LEUKAEMIA
     Dosage: 300 MG, BID
     Route: 048
     Dates: start: 20130129, end: 20131211
  2. GLUCOSAMINE + CHONDROITIN [Concomitant]
     Dosage: 500-400 MG, UDAILY
  3. LYRICA [Concomitant]
     Dosage: 100 MG, DAIKY
     Dates: start: 2011

REACTIONS (20)
  - Dermatophytosis [Unknown]
  - Pneumonia [Unknown]
  - Cough [Unknown]
  - Gastric ulcer [Unknown]
  - Oesophageal ulcer [Unknown]
  - Duodenal ulcer [Unknown]
  - Folliculitis [Unknown]
  - Ocular hyperaemia [Unknown]
  - Diarrhoea [Recovered/Resolved]
  - Pruritus [Unknown]
  - Rash [Unknown]
  - Amylase increased [Recovering/Resolving]
  - Swelling [Unknown]
  - Rash papular [Recovering/Resolving]
  - Dyspnoea exertional [Unknown]
  - Muscle spasms [Unknown]
  - Pain in extremity [Unknown]
  - Fatigue [Unknown]
  - Eye irritation [Unknown]
  - Abdominal pain upper [Unknown]
